FAERS Safety Report 6438306-7 (Version None)
Quarter: 2009Q4

REPORT INFORMATION
  Report Type: 
  Country: None (occurrence: None)
  Receive Date: 20091112
  Receipt Date: 20091109
  Transmission Date: 20100525
  Serious: Yes (Death, Hospitalization)
  Sender: FDA-Public Use
  Company Number: PHHY2009CZ48809

PATIENT
  Age: 48 Year
  Sex: Male

DRUGS (4)
  1. CYCLOSPORINE [Suspect]
     Indication: STEM CELL TRANSPLANT
  2. FLUDARABINE [Concomitant]
     Indication: BONE MARROW CONDITIONING REGIMEN
  3. CYCLOPHOSPHAMIDE [Concomitant]
     Indication: BONE MARROW CONDITIONING REGIMEN
  4. ANTITHYMOCYTE IMMUNOGLOBULIN [Concomitant]
     Indication: BONE MARROW CONDITIONING REGIMEN

REACTIONS (5)
  - CENTRAL NERVOUS SYSTEM LESION [None]
  - MONOPARESIS [None]
  - NEUROLOGICAL SYMPTOM [None]
  - PNEUMONIA [None]
  - TOXOPLASMOSIS [None]
